FAERS Safety Report 9148716 (Version 1)
Quarter: 2013Q1

REPORT INFORMATION
  Report Type: Spontaneous
  Country: US (occurrence: US)
  Receive Date: 20130308
  Receipt Date: 20130308
  Transmission Date: 20140127
  Serious: Yes (Other)
  Sender: FDA-Public Use
  Company Number: US-AMGEN-USASP2013014156

PATIENT
  Age: 57 Year
  Sex: Female
  Weight: 95 kg

DRUGS (7)
  1. NPLATE [Suspect]
     Indication: IDIOPATHIC THROMBOCYTOPENIC PURPURA
     Dosage: 2 MUG/KG, UNK
     Dates: start: 20090108
  2. CALCIUM [Concomitant]
     Dosage: UNK
  3. FOSAMAX [Concomitant]
     Dosage: UNK
  4. ALOPURINOL [Concomitant]
     Dosage: UNK
  5. TYLENOL /00020001/ [Concomitant]
     Dosage: UNK
  6. FOLIC ACID [Concomitant]
     Dosage: UNK
  7. LEVOTHYROXINE [Concomitant]
     Dosage: UNK

REACTIONS (2)
  - Peripheral arterial occlusive disease [Unknown]
  - Platelet count abnormal [Unknown]
